FAERS Safety Report 9822753 (Version 1)
Quarter: 2014Q1

REPORT INFORMATION
  Report Type: Report from Study
  Country: US (occurrence: US)
  Receive Date: 20140116
  Receipt Date: 20140116
  Transmission Date: 20141002
  Serious: Yes (Other)
  Sender: FDA-Public Use
  Company Number: US-ROCHE-1332465

PATIENT
  Age: 67 Year
  Sex: Female
  Weight: 72.64 kg

DRUGS (12)
  1. XOLAIR [Suspect]
     Indication: ASTHMA
     Route: 058
     Dates: start: 20130820
  2. XOLAIR [Suspect]
     Route: 058
     Dates: start: 20130917, end: 20130917
  3. SINGULAIR [Concomitant]
     Indication: ASTHMA
     Dosage: MAY BE 15 YEARS
     Route: 048
  4. SYMBICORT [Concomitant]
     Indication: ASTHMA
     Dosage: 2 PUFFS
     Route: 065
     Dates: start: 2009
  5. VERAMYST [Concomitant]
     Indication: HYPERSENSITIVITY
     Dosage: 2 SPRAYS IN EACH NOSTRIL
     Route: 065
  6. VERAMYST [Concomitant]
     Indication: SINUSITIS
  7. URSO [Concomitant]
     Indication: GASTRIC DISORDER
     Dosage: 2 TABLETS TWICE A DAY
     Route: 048
     Dates: start: 2012
  8. AMITIZA [Concomitant]
     Dosage: 2 CAPSULES
     Route: 048
     Dates: start: 201309
  9. EVISTA [Concomitant]
     Route: 048
  10. DEXILANT [Concomitant]
     Route: 048
  11. CRESTOR [Concomitant]
     Indication: BLOOD CHOLESTEROL
     Route: 065
  12. ZEGERID OTC [Concomitant]
     Route: 048
     Dates: start: 20131221

REACTIONS (3)
  - Aphonia [Recovered/Resolved]
  - Blood pressure decreased [Recovered/Resolved]
  - Feeling abnormal [Recovered/Resolved]
